FAERS Safety Report 20953998 (Version 3)
Quarter: 2022Q3

REPORT INFORMATION
  Report Type: Spontaneous
  Country: US (occurrence: US)
  Receive Date: 20220614
  Receipt Date: 20220813
  Transmission Date: 20221027
  Serious: No
  Sender: FDA-Public Use
  Company Number: US-BRISTOL-MYERS SQUIBB COMPANY-2022-053326

PATIENT
  Sex: Male

DRUGS (2)
  1. REVLIMID [Suspect]
     Active Substance: LENALIDOMIDE
     Indication: Plasma cell myeloma
     Dosage: DAYS 1-21, 7 DAYS OFF. 28 DAY CYCLES
     Route: 048
     Dates: start: 20220407
  2. REVLIMID [Suspect]
     Active Substance: LENALIDOMIDE
     Dosage: TAKE ONE CAPSULE  BY MOUTH  EVERY OTHER DAY.
     Route: 048
     Dates: start: 20220720

REACTIONS (3)
  - Rash [Unknown]
  - Herpes virus infection [Unknown]
  - Dyspnoea [Unknown]
